FAERS Safety Report 12405508 (Version 1)
Quarter: 2016Q2

REPORT INFORMATION
  Report Type: Spontaneous
  Country: US (occurrence: None)
  Receive Date: 20160525
  Receipt Date: 20160525
  Transmission Date: 20160815
  Serious: Yes (Other)
  Sender: FDA-Public Use
  Company Number: None

PATIENT
  Age: 71 Year
  Sex: Male

DRUGS (1)
  1. TEMOZOLOMIDE, 140 TEVA [Suspect]
     Active Substance: TEMOZOLOMIDE
     Indication: BRAIN NEOPLASM MALIGNANT
     Dosage: 140 MG /M2 DAILY ORAL
     Route: 048
     Dates: start: 20160505, end: 20160509

REACTIONS (1)
  - Purpura [None]

NARRATIVE: CASE EVENT DATE: 20160524
